FAERS Safety Report 5929427-3 (Version None)
Quarter: 2008Q4

REPORT INFORMATION
  Report Type: 
  Country: None (occurrence: None)
  Receive Date: 20081024
  Receipt Date: 20081014
  Transmission Date: 20090506
  Serious: Yes (Death)
  Sender: FDA-Public Use
  Company Number: US-ROCHE-591682

PATIENT
  Sex: Male
  Weight: 80.7 kg

DRUGS (27)
  1. ENFUVIRTIDE [Suspect]
     Indication: HIV INFECTION
     Dosage: PATIENT RECEIVED ONLY ONE DOSE OF ENFUVIRTIDE DURING THE ENTIRE STUDY.
     Route: 058
     Dates: start: 20070917, end: 20070917
  2. LISINOPRIL [Concomitant]
     Dates: start: 20070419, end: 20070920
  3. GLIPIZIDE [Concomitant]
     Dosage: DURG NAME REPORTED AS GLIPIZIDE ER.
     Dates: start: 20070419, end: 20080215
  4. WELLBUTRIN XL [Concomitant]
     Dates: start: 20070414, end: 20080215
  5. ANDROGEL [Concomitant]
     Dates: start: 20070419
  6. OMACOR [Concomitant]
     Dates: start: 20070419
  7. DAPSONE [Concomitant]
     Dates: start: 20070419, end: 20080215
  8. LIPITOR [Concomitant]
     Dates: start: 20070601
  9. NITROGLYCERIN [Concomitant]
     Dates: start: 20070614
  10. SYNTHROID [Concomitant]
     Dates: start: 20070731
  11. FLOMAX [Concomitant]
     Dates: start: 20070709, end: 20080215
  12. CLONIDINE [Concomitant]
     Dates: start: 20070709
  13. CLONIDINE [Concomitant]
     Dates: start: 20070731, end: 20080215
  14. NORVASC [Concomitant]
     Dates: start: 20070709, end: 20080215
  15. PREZISTA [Concomitant]
     Dates: start: 20070917
  16. NORVIR [Concomitant]
     Dates: start: 20070917
  17. ISENTRESS [Suspect]
     Indication: HIV INFECTION
     Route: 048
     Dates: start: 20070917
  18. EMTRIVA [Concomitant]
     Dates: start: 20070917
  19. TEKTURNA [Concomitant]
     Dates: start: 20070731
  20. COREG [Concomitant]
     Dates: start: 20070731, end: 20080215
  21. PAXIL [Concomitant]
     Dates: start: 20070709, end: 20080215
  22. XANAX [Concomitant]
     Dates: start: 20070731
  23. ARANESP [Concomitant]
     Dates: start: 20070917
  24. LASIX [Concomitant]
     Dates: start: 20070928, end: 20080215
  25. PHOSLO [Concomitant]
     Dates: start: 20070928, end: 20080215
  26. LEVAQUIN [Concomitant]
     Dates: start: 20070924, end: 20080215
  27. TEKTURNA [Concomitant]
     Dates: start: 20070731, end: 20070928

REACTIONS (1)
  - DEATH [None]
